FAERS Safety Report 7645498-0 (Version None)
Quarter: 2011Q3

REPORT INFORMATION
  Report Type: 
  Country: None (occurrence: None)
  Receive Date: 20110729
  Receipt Date: 20110719
  Transmission Date: 20111222
  Serious: Yes (Other)
  Sender: FDA-Public Use
  Company Number: US-ALLERGAN-1109751US

PATIENT
  Age: 77 Year
  Sex: Female
  Weight: 77.007 kg

DRUGS (10)
  1. XALATAN [Suspect]
     Indication: INTRAOCULAR PRESSURE INCREASED
     Dosage: 2 GTT, QD
     Dates: start: 20030101
  2. XALATAN [Suspect]
     Indication: CATARACT
  3. ASPIRIN [Suspect]
     Indication: CARDIAC DISORDER
     Dosage: UNK
     Dates: start: 20110501, end: 20110501
  4. SYNTHROID [Concomitant]
     Indication: HYPERTHYROIDISM
     Dosage: 50 A?G, QD
  5. LUMIGAN [Suspect]
     Indication: CATARACT
  6. XALATAN [Suspect]
     Indication: GLAUCOMA
  7. LUMIGAN [Suspect]
     Indication: GLAUCOMA
     Dosage: 1 GTT, UNKNOWN
     Dates: start: 20110301, end: 20110626
  8. SIMVASTATIN [Concomitant]
     Indication: BLOOD CHOLESTEROL INCREASED
     Dosage: 10 MG, QD
  9. ATACAND [Concomitant]
     Dosage: UNK
  10. NADOLOL [Concomitant]
     Indication: HYPERTENSION
     Dosage: 40 MG, BID

REACTIONS (2)
  - VISUAL IMPAIRMENT [None]
  - EYELID PTOSIS [None]
